FAERS Safety Report 4906816-7 (Version None)
Quarter: 2006Q1

REPORT INFORMATION
  Report Type: 
  Country: None (occurrence: None)
  Receive Date: 20060209
  Receipt Date: 20060130
  Transmission Date: 20060701
  Serious: Yes (Hospitalization, Other)
  Sender: FDA-Public Use
  Company Number: AU-BRISTOL-MYERS SQUIBB COMPANY-13271457

PATIENT
  Age: 30 Year
  Sex: Female
  Weight: 93 kg

DRUGS (4)
  1. METFORMIN HCL [Suspect]
     Indication: OVULATION INDUCTION
     Route: 048
  2. CLOMIPHENE [Suspect]
     Indication: OVULATION INDUCTION
     Dosage: 3 CYCLES OF 5 DAYS EACH
  3. LITHIUM [Concomitant]
     Indication: MAJOR DEPRESSION
  4. SEROTONIN REUPTAKE INHIBITORS [Concomitant]
     Indication: MAJOR DEPRESSION

REACTIONS (7)
  - CAESAREAN SECTION [None]
  - DRUG INEFFECTIVE [None]
  - ENDOMETRIOSIS [None]
  - INTRA-UTERINE DEATH [None]
  - MULTIPLE PREGNANCY [None]
  - PRE-ECLAMPSIA [None]
  - PREGNANCY [None]
